FAERS Safety Report 12492254 (Version 1)
Quarter: 2016Q2

REPORT INFORMATION
  Report Type: Spontaneous
  Country: FR (occurrence: FR)
  Receive Date: 20160623
  Receipt Date: 20160623
  Transmission Date: 20160815
  Serious: Yes (Hospitalization, Other)
  Sender: FDA-Public Use
  Company Number: FR-PFIZER INC-2016304628

PATIENT
  Age: 86 Year
  Sex: Female

DRUGS (9)
  1. LYRICA [Suspect]
     Active Substance: PREGABALIN
     Dosage: 25 MG, 1X/DAY
     Route: 048
     Dates: end: 20160302
  2. ESOMEPRAZOLE [Concomitant]
     Active Substance: ESOMEPRAZOLE
     Dosage: 40 MG, 1X/DAY
  3. LOXEN LP [Concomitant]
     Active Substance: NICARDIPINE
     Dosage: 50 MG, 2X/DAY
  4. ACTISKENAN [Suspect]
     Active Substance: MORPHINE SULFATE
     Dosage: 5 MG, 4X/DAY
     Route: 048
     Dates: end: 20160302
  5. KARDEGIC [Concomitant]
     Active Substance: ASPIRIN LYSINE
     Dosage: 75 MG, 1X/DAY
  6. LAMALINE [Suspect]
     Active Substance: ACETAMINOPHEN\CAFFEINE\OPIUM
     Dosage: 1 DF, 4X/DAY
     Route: 048
     Dates: end: 20160302
  7. ANAFRANIL [Concomitant]
     Active Substance: CLOMIPRAMINE HYDROCHLORIDE
     Dosage: 25 MG, 1X/DAY
  8. LEVETIRACETAM. [Suspect]
     Active Substance: LEVETIRACETAM
     Dosage: 500 MG, 1X/DAY
     Route: 048
     Dates: end: 20160302
  9. PREVISCAN /00789001/ [Concomitant]
     Active Substance: FLUINDIONE
     Dosage: 20 MG ON EVEN DAYS AND 15 MG ON ODD DAYS
     Dates: start: 201511

REACTIONS (8)
  - Disorientation [Recovering/Resolving]
  - Consciousness fluctuating [Unknown]
  - Speech disorder [Unknown]
  - Depression [Unknown]
  - Pain [Unknown]
  - Malaise [Recovering/Resolving]
  - Pneumonia aspiration [Unknown]
  - Fall [Recovering/Resolving]

NARRATIVE: CASE EVENT DATE: 20160229
